FAERS Safety Report 14999656 (Version 1)
Quarter: 2018Q2

REPORT INFORMATION
  Report Type: Spontaneous
  Country: DE (occurrence: DE)
  Receive Date: 20180612
  Receipt Date: 20180612
  Transmission Date: 20180711
  Serious: Yes (Hospitalization)
  Sender: FDA-Public Use
  Company Number: DE-TEVA-2018-DE-904314

PATIENT
  Age: 66 Year
  Sex: Male

DRUGS (7)
  1. METAMIZOL [Concomitant]
     Active Substance: METAMIZOLE SODIUM
     Dosage: NEED
     Route: 065
  2. LORAZEPAM. [Concomitant]
     Active Substance: LORAZEPAM
     Dosage: NEED
     Route: 065
  3. PANTOPRAZOL [Concomitant]
     Active Substance: PANTOPRAZOLE SODIUM
     Dosage: 40 MILLIGRAM DAILY;  0-0-1-0
     Route: 065
  4. FLUOROURACIL. [Suspect]
     Active Substance: FLUOROURACIL
     Dosage: NK MG, NK
     Route: 065
  5. AMLODIPIN [Concomitant]
     Active Substance: AMLODIPINE BESYLATE
     Dosage: 5 MILLIGRAM DAILY;  1-0-0-0
     Route: 065
  6. TAMSULOSIN [Concomitant]
     Active Substance: TAMSULOSIN
     Dosage: .4 MILLIGRAM DAILY;  1-0-0-0
     Route: 065
  7. RAMIPRIL. [Concomitant]
     Active Substance: RAMIPRIL
     Dosage: 2.5 MILLIGRAM DAILY; 1-0-0-0
     Route: 065

REACTIONS (2)
  - Systemic infection [Unknown]
  - Pyrexia [Unknown]
